FAERS Safety Report 8328126-0 (Version None)
Quarter: 2012Q2

REPORT INFORMATION
  Report Type: 
  Country: None (occurrence: None)
  Receive Date: 20120430
  Receipt Date: 20120416
  Transmission Date: 20120825
  Serious: Yes (Other)
  Sender: FDA-Public Use
  Company Number: JP-2012-14109

PATIENT
  Age: 90 Year
  Sex: Male
  Weight: 34 kg

DRUGS (17)
  1. OMEPRAZOLE [Concomitant]
  2. MARZULENE S (LEVOGLUTAMIDE, SODIUM GUALENATE) [Concomitant]
  3. ISOSORBIDE DINITRATE [Concomitant]
  4. LENDORM [Concomitant]
  5. FUROSEMIDE [Suspect]
     Indication: CARDIAC FAILURE
     Dosage: 40 MG MILLIGRAM(S), DAILY DOSE, ORAL ; 20 MG MILLIGRAM(S), DAILY DOSE, ORAL
     Route: 048
     Dates: start: 20120228
  6. FUROSEMIDE [Suspect]
     Indication: CARDIAC FAILURE
     Dosage: 40 MG MILLIGRAM(S), DAILY DOSE, ORAL ; 20 MG MILLIGRAM(S), DAILY DOSE, ORAL
     Route: 048
     Dates: end: 20120227
  7. ALDACTONE S (SPIRONOLACTONE) [Concomitant]
  8. SAMSCA [Suspect]
     Indication: FLUID RETENTION
     Dosage: 7.5 MG MILLIGRAM(S), QAM, ORAL ; 15 MG MILLIGRAM(S), QAM, ORAL ; 7.5 MG MILLIGRAM(S), QAM, ORAL
     Route: 048
     Dates: start: 20120226
  9. SAMSCA [Suspect]
     Indication: FLUID RETENTION
     Dosage: 7.5 MG MILLIGRAM(S), QAM, ORAL ; 15 MG MILLIGRAM(S), QAM, ORAL ; 7.5 MG MILLIGRAM(S), QAM, ORAL
     Route: 048
     Dates: start: 20120218, end: 20120222
  10. SAMSCA [Suspect]
     Indication: FLUID RETENTION
     Dosage: 7.5 MG MILLIGRAM(S), QAM, ORAL ; 15 MG MILLIGRAM(S), QAM, ORAL ; 7.5 MG MILLIGRAM(S), QAM, ORAL
     Route: 048
     Dates: start: 20120223, end: 20120225
  11. ALLOPURINOL [Concomitant]
  12. DIART (AZOSEMIDE) TABLET [Suspect]
     Indication: CARDIAC FAILURE
     Dosage: 60 MG MILLIGRAM(S), DAILY DOSE, ORAL ; 30 MG MILLIGRAM(S), DAILY DOSE, ORAL
     Route: 048
     Dates: end: 20120227
  13. DIART (AZOSEMIDE) TABLET [Suspect]
     Indication: CARDIAC FAILURE
     Dosage: 60 MG MILLIGRAM(S), DAILY DOSE, ORAL ; 30 MG MILLIGRAM(S), DAILY DOSE, ORAL
     Route: 048
     Dates: start: 20120228
  14. ASPIRIN [Concomitant]
  15. DIGOXIN [Concomitant]
  16. DAIKENTYUTO (HERBAL EXTRACT NOS) [Concomitant]
  17. PLETAL [Concomitant]

REACTIONS (3)
  - THIRST [None]
  - HYPONATRAEMIA [None]
  - POTENTIATING DRUG INTERACTION [None]
